FAERS Safety Report 9636406 (Version 2)
Quarter: 2013Q4

REPORT INFORMATION
  Report Type: Report from Study
  Country: US (occurrence: US)
  Receive Date: 20131021
  Receipt Date: 20131021
  Transmission Date: 20140711
  Serious: Yes (Hospitalization)
  Sender: FDA-Public Use
  Company Number: US-ACTELION-A-NJ2013-89313

PATIENT
  Age: 27 Year
  Sex: Male

DRUGS (3)
  1. VELETRI [Suspect]
     Indication: COR PULMONALE CHRONIC
     Dosage: 44 NG/KG, PER MIN
     Route: 042
     Dates: start: 20100630
  2. ADCIRCA [Concomitant]
  3. COUMADIN [Concomitant]

REACTIONS (2)
  - Colitis [Recovering/Resolving]
  - Gastritis [Recovering/Resolving]
